FAERS Safety Report 8259077 (Version 85)
Quarter: 2016Q4

REPORT INFORMATION
  Report Type: Report from Study
  Country: CA (occurrence: CA)
  Receive Date: 20111122
  Receipt Date: 20161202
  Transmission Date: 20170207
  Serious: Yes (Death, Hospitalization, Other)
  Sender: FDA-Public Use
  Company Number: PHHY2011CA67004

PATIENT
  Age: 67 Year
  Sex: Male

DRUGS (27)
  1. SANDOSTATIN LAR DEPOT [Suspect]
     Active Substance: OCTREOTIDE ACETATE
     Dosage: 60 MG, QMO
     Route: 030
     Dates: start: 20150430
  2. METOPROLOL. [Suspect]
     Active Substance: METOPROLOL
     Dosage: 50 MG, BID
     Route: 065
  3. SANDOSTATIN LAR DEPOT [Suspect]
     Active Substance: OCTREOTIDE ACETATE
     Dosage: 40 MG, QMO
     Route: 030
     Dates: start: 20140115
  4. CIPROFLOXACIN. [Concomitant]
     Active Substance: CIPROFLOXACIN
     Indication: PRODUCT USED FOR UNKNOWN INDICATION
     Dosage: 500 MG, BID
     Route: 048
     Dates: start: 20160926, end: 20161010
  5. SANDOSTATIN LAR DEPOT [Suspect]
     Active Substance: OCTREOTIDE ACETATE
     Indication: CARCINOID TUMOUR
     Dosage: 30 MG, QMO
     Route: 030
     Dates: start: 20110617
  6. SANDOSTATIN LAR DEPOT [Suspect]
     Active Substance: OCTREOTIDE ACETATE
     Dosage: 30 MG, QMO
     Route: 030
     Dates: start: 20130122
  7. SANDOSTATIN LAR DEPOT [Suspect]
     Active Substance: OCTREOTIDE ACETATE
     Dosage: 60 MG, TIW (EVERY 3 WEEKS)
     Route: 030
     Dates: start: 20140401
  8. BABY ASPIRIN [Concomitant]
     Active Substance: ASPIRIN
     Indication: PRODUCT USED FOR UNKNOWN INDICATION
     Route: 065
  9. TINZAPARIN [Concomitant]
     Active Substance: TINZAPARIN
     Indication: PRODUCT USED FOR UNKNOWN INDICATION
     Route: 065
  10. SANDOSTATIN LAR DEPOT [Suspect]
     Active Substance: OCTREOTIDE ACETATE
     Dosage: 40 MG, QMO
     Route: 030
     Dates: start: 20120612
  11. SANDOSTATIN LAR DEPOT [Suspect]
     Active Substance: OCTREOTIDE ACETATE
     Dosage: 40 MG, QMO (EVERY 4 WEEKS)
     Route: 030
     Dates: start: 20160617
  12. SANDOSTATIN LAR DEPOT [Suspect]
     Active Substance: OCTREOTIDE ACETATE
     Dosage: 40 MG, QMO
     Route: 030
     Dates: start: 20160908
  13. TOLOXIN//DIGOXIN [Concomitant]
     Indication: PRODUCT USED FOR UNKNOWN INDICATION
     Route: 065
  14. SANDOSTATIN LAR DEPOT [Suspect]
     Active Substance: OCTREOTIDE ACETATE
     Dosage: 40 MG, QMO
     Route: 030
     Dates: start: 20120807
  15. SANDOSTATIN LAR DEPOT [Suspect]
     Active Substance: OCTREOTIDE ACETATE
     Dosage: 60 MG, QMO
     Route: 030
     Dates: start: 20160611
  16. SANDOSTATIN LAR DEPOT [Suspect]
     Active Substance: OCTREOTIDE ACETATE
     Dosage: 60 MG, QMO
     Route: 030
     Dates: start: 20160908
  17. ASA [Concomitant]
     Active Substance: ASPIRIN
     Indication: PRODUCT USED FOR UNKNOWN INDICATION
     Dosage: 81 MG, QD
     Route: 065
  18. RAMIPRIL. [Concomitant]
     Active Substance: RAMIPRIL
     Route: 065
     Dates: start: 20151008, end: 20151012
  19. METOPROLOL. [Suspect]
     Active Substance: METOPROLOL
     Indication: PRODUCT USED FOR UNKNOWN INDICATION
     Dosage: 75 MG, BID
     Route: 065
  20. VIAGRA [Concomitant]
     Active Substance: SILDENAFIL CITRATE
     Indication: PRODUCT USED FOR UNKNOWN INDICATION
     Dosage: 50 MG
     Route: 065
  21. APO-FUROSEMIDE [Concomitant]
     Active Substance: FUROSEMIDE
     Indication: PRODUCT USED FOR UNKNOWN INDICATION
     Route: 065
  22. RAMIPRIL. [Concomitant]
     Active Substance: RAMIPRIL
     Indication: PRODUCT USED FOR UNKNOWN INDICATION
     Dosage: 5 MG, QD
     Route: 065
     Dates: start: 20150910
  23. SANDOSTATIN LAR DEPOT [Suspect]
     Active Substance: OCTREOTIDE ACETATE
     Dosage: 40 MG, QMO
     Route: 030
     Dates: start: 20161006
  24. SANDOSTATIN LAR DEPOT [Suspect]
     Active Substance: OCTREOTIDE ACETATE
     Dosage: 30 MG, QMO
     Route: 030
     Dates: start: 20161102
  25. SANDOSTATIN LAR DEPOT [Suspect]
     Active Substance: OCTREOTIDE ACETATE
     Dosage: 40 MG, QMO
     Route: 030
     Dates: start: 20160711, end: 20160908
  26. PANTOPRAZOLE [Concomitant]
     Active Substance: PANTOPRAZOLE SODIUM
     Indication: PRODUCT USED FOR UNKNOWN INDICATION
     Route: 065
  27. METRONIDAZOLE. [Concomitant]
     Active Substance: METRONIDAZOLE
     Indication: PRODUCT USED FOR UNKNOWN INDICATION
     Dosage: 250 MG, TID
     Route: 048
     Dates: start: 20160926, end: 20161010

REACTIONS (102)
  - Metastases to bone [Unknown]
  - Flushing [Recovered/Resolved]
  - Malaise [Unknown]
  - Influenza like illness [Unknown]
  - Peripheral swelling [Not Recovered/Not Resolved]
  - Spinal disorder [Unknown]
  - Contusion [Unknown]
  - Neck pain [Unknown]
  - Heart rate increased [Unknown]
  - Dizziness [Unknown]
  - Pneumonia [Unknown]
  - Back pain [Unknown]
  - Blood pressure decreased [Unknown]
  - Blood pressure diastolic increased [Unknown]
  - General physical health deterioration [Unknown]
  - Rash erythematous [Unknown]
  - Inappropriate schedule of drug administration [Unknown]
  - Ligament sprain [Unknown]
  - Loss of consciousness [Unknown]
  - Soft tissue injury [Unknown]
  - Second primary malignancy [Unknown]
  - Syncope [Unknown]
  - Metastases to lung [Unknown]
  - Vein disorder [Unknown]
  - Venous occlusion [Unknown]
  - Flushing [Recovered/Resolved]
  - Pain [Unknown]
  - Skin ulcer [Unknown]
  - Skin mass [Recovering/Resolving]
  - Swelling [Unknown]
  - Myalgia [Recovered/Resolved]
  - Pain in extremity [Unknown]
  - Confusional state [Unknown]
  - Muscle twitching [Unknown]
  - Somnolence [Unknown]
  - Blood glucose increased [Unknown]
  - Asthenia [Unknown]
  - Abdominal pain [Recovered/Resolved]
  - Fall [Unknown]
  - Jaundice [Unknown]
  - Petit mal epilepsy [Unknown]
  - Malignant neoplasm progression [Unknown]
  - Balance disorder [Unknown]
  - Malaise [Recovered/Resolved]
  - Chills [Unknown]
  - Blood parathyroid hormone increased [Unknown]
  - Blood pressure fluctuation [Unknown]
  - Stress [Unknown]
  - Gait disturbance [Unknown]
  - Platelet count decreased [Unknown]
  - Weight decreased [Recovered/Resolved]
  - Weight increased [Unknown]
  - Wound [Unknown]
  - Bone pain [Recovered/Resolved]
  - Blood iron decreased [Unknown]
  - Blood alkaline phosphatase increased [Unknown]
  - Syringe issue [Unknown]
  - Renal failure [Unknown]
  - Facial bones fracture [Unknown]
  - Small intestinal obstruction [Unknown]
  - Blood pressure increased [Unknown]
  - Flushing [Unknown]
  - Pyrexia [Unknown]
  - Feeling abnormal [Unknown]
  - Blood potassium increased [Unknown]
  - Gluten sensitivity [Unknown]
  - Decreased appetite [Recovered/Resolved]
  - Injection site bruising [Unknown]
  - Injection site pain [Recovered/Resolved]
  - Abdominal pain [Unknown]
  - Heart rate irregular [Unknown]
  - Abdominal abscess [Recovering/Resolving]
  - Metastases to abdominal cavity [Unknown]
  - Influenza like illness [Recovered/Resolved]
  - Dysphagia [Unknown]
  - Food intolerance [Unknown]
  - Nausea [Unknown]
  - Heart rate decreased [Unknown]
  - Diarrhoea [Not Recovered/Not Resolved]
  - Death [Fatal]
  - Intestinal fistula [Unknown]
  - Haemorrhage [Unknown]
  - Musculoskeletal pain [Unknown]
  - Body temperature decreased [Unknown]
  - Fatigue [Recovered/Resolved]
  - Tricuspid valve disease [Unknown]
  - Thrombosis [Unknown]
  - Skin cancer [Unknown]
  - Carcinoid crisis [Unknown]
  - Blood pressure systolic increased [Unknown]
  - Scab [Recovering/Resolving]
  - Anaemia [Unknown]
  - Lung disorder [Unknown]
  - Cutaneous amyloidosis [Unknown]
  - Sunburn [Unknown]
  - Cystitis [Unknown]
  - Musculoskeletal chest pain [Unknown]
  - Bowel movement irregularity [Unknown]
  - Pruritus [Unknown]
  - Injection site mass [Unknown]
  - Flatulence [Recovering/Resolving]
  - Fatigue [Unknown]

NARRATIVE: CASE EVENT DATE: 20120215
